FAERS Safety Report 4711362-X (Version None)
Quarter: 2005Q3

REPORT INFORMATION
  Report Type: 
  Country: None (occurrence: None)
  Receive Date: 20050708
  Receipt Date: 20050627
  Transmission Date: 20060218
  Serious: Yes (Other)
  Sender: FDA-Public Use
  Company Number: 2005094661

PATIENT
  Age: 37 Year
  Sex: Female

DRUGS (2)
  1. NEURONTIN [Suspect]
     Indication: BIPOLAR DISORDER
  2. CARBON MONOXIDE (CARBON MONOXIDE) [Suspect]
     Indication: ILL-DEFINED DISORDER

REACTIONS (3)
  - CARBON MONOXIDE POISONING [None]
  - DRUG INEFFECTIVE [None]
  - SUICIDE ATTEMPT [None]
